FAERS Safety Report 15857015 (Version 1)
Quarter: 2019Q1

REPORT INFORMATION
  Report Type: Report from Study
  Country: GB (occurrence: GB)
  Receive Date: 20190123
  Receipt Date: 20190123
  Transmission Date: 20190417
  Serious: Yes (Life-Threatening)
  Sender: FDA-Public Use
  Company Number: GB-ROCHE-2248089

PATIENT
  Sex: Female
  Weight: 56 kg

DRUGS (3)
  1. CYCLOSPORINE. [Concomitant]
     Active Substance: CYCLOSPORINE
     Indication: RHEUMATOID ARTHRITIS
  2. RITUXIMAB. [Suspect]
     Active Substance: RITUXIMAB
     Indication: RHEUMATOID ARTHRITIS
     Dosage: DOSE UNKNOWN
     Route: 042
     Dates: start: 20111019, end: 20140615
  3. HYDROXYCHLOROQUINE [Concomitant]
     Active Substance: HYDROXYCHLOROQUINE
     Indication: RHEUMATOID ARTHRITIS

REACTIONS (1)
  - Non-Hodgkin^s lymphoma [Unknown]

NARRATIVE: CASE EVENT DATE: 20180104
